FAERS Safety Report 10735622 (Version 1)
Quarter: 2015Q1

REPORT INFORMATION
  Report Type: Spontaneous
  Country: GB (occurrence: None)
  Receive Date: 20150121
  Receipt Date: 20150121
  Transmission Date: 20150721
  Serious: Yes (Death)
  Sender: FDA-Public Use
  Company Number: FK201500279

PATIENT

DRUGS (1)
  1. OCTREOTIDE INJECTION (MANUFACTURER UNKNOWN) (OCTREOTIDE ACETATE) (OCTREOTIDE ACETATE) [Suspect]
     Active Substance: OCTREOTIDE
     Indication: PRODUCT USED FOR UNKNOWN INDICATION

REACTIONS (1)
  - Death [None]
